FAERS Safety Report 21450491 (Version 1)
Quarter: 2022Q4

REPORT INFORMATION
  Report Type: Spontaneous
  Country: US (occurrence: None)
  Receive Date: 20221012
  Receipt Date: 20221012
  Transmission Date: 20230113
  Serious: No
  Sender: FDA-Public Use
  Company Number: None

PATIENT
  Age: 80 Year
  Sex: Male
  Weight: 59.28 kg

DRUGS (26)
  1. ORENCIA [Suspect]
     Active Substance: ABATACEPT
     Indication: Graft versus host disease
     Dosage: FREQUENCY : WEEKLY;?
     Route: 058
     Dates: start: 20220211
  2. BENADRYL/MAALOX/XYLOCAINE [Concomitant]
  3. CEVIMELINE [Concomitant]
     Active Substance: CEVIMELINE
  4. CLOBETASOL [Concomitant]
     Active Substance: CLOBETASOL
  5. DEXAMETHASONE [Concomitant]
     Active Substance: DEXAMETHASONE
  6. HYDROCORTISONE [Concomitant]
     Active Substance: HYDROCORTISONE
  7. HYDROXYZINE [Concomitant]
     Active Substance: HYDROXYZINE HYDROCHLORIDE
  8. JAKAFI [Concomitant]
     Active Substance: RUXOLITINIB
  9. LEXAPRO [Concomitant]
     Active Substance: ESCITALOPRAM OXALATE
  10. MONTELUKAST [Concomitant]
     Active Substance: MONTELUKAST SODIUM
  11. MYCOPHENOLIC ACID [Concomitant]
     Active Substance: MYCOPHENOLIC ACID
  12. ONDANSETRON [Concomitant]
     Active Substance: ONDANSETRON
  13. PANCRELIPASE [Concomitant]
     Active Substance: PANCRELIPASE
  14. PENICILLIN V POTASSIUM [Concomitant]
     Active Substance: PENICILLIN V POTASSIUM
  15. PROCHLORPERAZINE [Concomitant]
     Active Substance: PROCHLORPERAZINE
  16. PROTOPIC [Concomitant]
     Active Substance: TACROLIMUS
  17. PULMICORT TURBUHALER [Concomitant]
     Active Substance: BUDESONIDE
  18. REZUROCK [Concomitant]
     Active Substance: BELUMOSUDIL
  19. SENNA [Concomitant]
     Active Substance: SENNA LEAF\SENNOSIDES\SENNOSIDES A AND B
  20. SPIRIVA [Concomitant]
     Active Substance: TIOTROPIUM BROMIDE MONOHYDRATE
  21. TACROLIMUS [Concomitant]
     Active Substance: TACROLIMUS
  22. TAMSULOSIN [Concomitant]
     Active Substance: TAMSULOSIN
  23. TRAMADOL [Concomitant]
     Active Substance: TRAMADOL
  24. TRIAMCINOLONE [Concomitant]
     Active Substance: TRIAMCINOLONE
  25. VITAMIN D3 [Concomitant]
     Active Substance: CHOLECALCIFEROL
  26. ZINC220 [Concomitant]

REACTIONS (1)
  - Hospice care [None]
